FAERS Safety Report 20858766 (Version 1)
Quarter: 2022Q2

REPORT INFORMATION
  Report Type: Spontaneous
  Country: US (occurrence: US)
  Receive Date: 20220522
  Receipt Date: 20220522
  Transmission Date: 20220721
  Serious: No
  Sender: FDA-Public Use
  Company Number: US-BRISTOL-MYERS SQUIBB COMPANY-2022-036655

PATIENT
  Age: 71 Year
  Sex: Male

DRUGS (1)
  1. ONUREG [Suspect]
     Active Substance: AZACITIDINE
     Indication: Product used for unknown indication
     Dosage: DOSE : 1 TABLET;     FREQ : ONCE DAILY TAKE ON DAYS 1 THROUGH 14, 2 WEEKS OUT OF EVERY 5 WEEKS
     Route: 048

REACTIONS (1)
  - White blood cell count decreased [Unknown]
